FAERS Safety Report 10676795 (Version 1)
Quarter: 2014Q4

REPORT INFORMATION
  Report Type: Spontaneous
  Country: US (occurrence: US)
  Receive Date: 20141226
  Receipt Date: 20141226
  Transmission Date: 20150529
  Serious: No
  Sender: FDA-Public Use
  Company Number: US-GLAXOSMITHKLINE-US2014GSK021614

PATIENT
  Age: 52 Year
  Sex: Male

DRUGS (2)
  1. BUPROPION HCL TABLET [Suspect]
     Active Substance: BUPROPION HYDROCHLORIDE
     Indication: DEPRESSION
     Dosage: 200 MG MORNING, 100 MG EVENING
     Route: 048
     Dates: start: 201406
  2. BUPROPION HCL TABLET [Suspect]
     Active Substance: BUPROPION HYDROCHLORIDE
     Indication: ANXIETY

REACTIONS (4)
  - Dyspepsia [Not Recovered/Not Resolved]
  - Stomatitis [Not Recovered/Not Resolved]
  - Wrong technique in drug usage process [Unknown]
  - Gastrointestinal tract irritation [Not Recovered/Not Resolved]

NARRATIVE: CASE EVENT DATE: 201407
